FAERS Safety Report 25466918 (Version 1)
Quarter: 2025Q2

REPORT INFORMATION
  Report Type: Spontaneous
  Country: CN (occurrence: CN)
  Receive Date: 20250623
  Receipt Date: 20250623
  Transmission Date: 20250716
  Serious: Yes (Other)
  Sender: SANOFI AVENTIS
  Company Number: CN-SA-2025SA175893

PATIENT
  Age: 47 Year
  Sex: Female
  Weight: 54.5 kg

DRUGS (2)
  1. OXALIPLATIN [Suspect]
     Active Substance: OXALIPLATIN
     Indication: Gastric cancer
     Route: 041
     Dates: start: 20250420, end: 20250420
  2. TISLELIZUMAB [Suspect]
     Active Substance: TISLELIZUMAB
     Indication: Gastric cancer
     Route: 041
     Dates: start: 20250420, end: 20250420

REACTIONS (4)
  - Neurotoxicity [Recovering/Resolving]
  - Hypoaesthesia [Recovering/Resolving]
  - Skin discolouration [Recovering/Resolving]
  - Constipation [Recovering/Resolving]

NARRATIVE: CASE EVENT DATE: 20250101
